FAERS Safety Report 6060280-6 (Version None)
Quarter: 2009Q1

REPORT INFORMATION
  Report Type: 
  Country: None (occurrence: None)
  Receive Date: 20090129
  Receipt Date: 20090122
  Transmission Date: 20090719
  Serious: No
  Sender: FDA-Public Use
  Company Number: MSTR-NO-0809S-0074

PATIENT
  Age: 64 Year
  Sex: Female

DRUGS (1)
  1. METASTRON [Suspect]
     Indication: METASTATIC PAIN
     Dosage: SINGLE DOSE, I.V.
     Route: 042
     Dates: start: 20080603, end: 20080603

REACTIONS (3)
  - MALIGNANT NEOPLASM PROGRESSION [None]
  - NO ADVERSE EVENT [None]
  - RECTAL CANCER METASTATIC [None]
